FAERS Safety Report 18833650 (Version 1)
Quarter: 2021Q1

REPORT INFORMATION
  Report Type: Spontaneous
  Country: US (occurrence: US)
  Receive Date: 20210203
  Receipt Date: 20210203
  Transmission Date: 20210419
  Serious: No
  Sender: FDA-Public Use
  Company Number: US-ALLERGAN-2005114US

PATIENT
  Sex: Female

DRUGS (1)
  1. BOTOX [Suspect]
     Active Substance: ONABOTULINUMTOXINA
     Indication: MIGRAINE
     Dosage: UNK UNK, SINGLE
     Dates: start: 20200130, end: 20200130

REACTIONS (6)
  - Musculoskeletal stiffness [Unknown]
  - Feeling abnormal [Unknown]
  - Muscle spasms [Unknown]
  - Migraine [Unknown]
  - Impaired work ability [Unknown]
  - Insomnia [Unknown]

NARRATIVE: CASE EVENT DATE: 20200203
